FAERS Safety Report 22352552 (Version 1)
Quarter: 2023Q2

REPORT INFORMATION
  Report Type: Spontaneous
  Country: CN (occurrence: None)
  Receive Date: 20230522
  Receipt Date: 20230522
  Transmission Date: 20230721
  Serious: Yes (Other)
  Sender: FDA-Public Use
  Company Number: CN-ROCHE-3353725

PATIENT
  Age: 58 Year
  Sex: Male
  Weight: 66 kg

DRUGS (6)
  1. AVASTIN [Suspect]
     Active Substance: BEVACIZUMAB
     Indication: Lung neoplasm malignant
     Route: 041
     Dates: start: 20230505, end: 20230505
  2. AVASTIN [Suspect]
     Active Substance: BEVACIZUMAB
     Indication: Pneumonia
  3. PEMETREXED DISODIUM [Suspect]
     Active Substance: PEMETREXED DISODIUM
     Indication: Lung neoplasm malignant
     Route: 041
     Dates: start: 20230505, end: 20230505
  4. PEMETREXED DISODIUM [Suspect]
     Active Substance: PEMETREXED DISODIUM
     Indication: Pneumonia
  5. CARBOPLATIN [Suspect]
     Active Substance: CARBOPLATIN
     Indication: Lung neoplasm malignant
     Route: 041
     Dates: start: 20230505, end: 20230505
  6. CARBOPLATIN [Suspect]
     Active Substance: CARBOPLATIN
     Indication: Pneumonia

REACTIONS (3)
  - Agranulocytosis [Unknown]
  - Platelet count decreased [Unknown]
  - Myelosuppression [Unknown]

NARRATIVE: CASE EVENT DATE: 20230514
